FAERS Safety Report 5366832-0 (Version None)
Quarter: 2007Q2

REPORT INFORMATION
  Report Type: 
  Country: None (occurrence: None)
  Receive Date: 20070622
  Receipt Date: 20070614
  Transmission Date: 20071010
  Serious: Yes (Hospitalization)
  Sender: FDA-Public Use
  Company Number: PHEH2007US09065

PATIENT

DRUGS (5)
  1. TEKTURNA [Suspect]
     Indication: HYPERTENSION
     Route: 048
  2. LUNESTA [Concomitant]
  3. VICODIN [Concomitant]
  4. KLONOPIN [Concomitant]
  5. GABAPENTIN [Concomitant]

REACTIONS (2)
  - BLOOD ALCOHOL INCREASED [None]
  - RESPIRATORY DISORDER [None]
